FAERS Safety Report 14368187 (Version 1)
Quarter: 2018Q1

REPORT INFORMATION
  Report Type: Spontaneous
  Country: US (occurrence: US)
  Receive Date: 20180109
  Receipt Date: 20180109
  Transmission Date: 20180509
  Serious: Yes (Hospitalization)
  Sender: FDA-Public Use
  Company Number: US-ACELLA PHARMACEUTICALS, LLC-2039746

PATIENT
  Age: 17 Year
  Sex: Male

DRUGS (2)
  1. LOPERAMIDE HCL [Suspect]
     Active Substance: LOPERAMIDE HYDROCHLORIDE
  2. BROMPHENIRAMINE MAL, PSEUDOEPHEDRINE HCL, AND DEXTROMETHORPHAN HBR [Suspect]
     Active Substance: BROMPHENIRAMINE MALEATE\DEXTROMETHORPHAN HYDROBROMIDE\PSEUDOEPHEDRINE HYDROCHLORIDE

REACTIONS (10)
  - Dyspnoea [Unknown]
  - Irritability [Unknown]
  - Conduction disorder [Unknown]
  - Confusional state [Unknown]
  - Somnolence [Unknown]
  - Vomiting [Unknown]
  - Agitation [Unknown]
  - Lethargy [Unknown]
  - Electrolyte imbalance [Unknown]
  - Respiratory depression [Unknown]
